FAERS Safety Report 20011088 (Version 1)
Quarter: 2021Q4

REPORT INFORMATION
  Report Type: Report from Study
  Country: FR (occurrence: FR)
  Receive Date: 20211028
  Receipt Date: 20211028
  Transmission Date: 20220303
  Serious: Yes (Hospitalization)
  Sender: FDA-Public Use
  Company Number: FR-SERVIER-S20007502

PATIENT

DRUGS (16)
  1. PEGASPARGASE [Suspect]
     Active Substance: PEGASPARGASE
     Indication: Acute lymphocytic leukaemia
     Dosage: 3100 IU, ON D4
     Route: 042
     Dates: start: 20200618, end: 20200618
  2. TN UNSPECIFIED [Concomitant]
     Indication: Acute lymphocytic leukaemia
     Dosage: 1.8 MG, ON D1, D8, D15
     Route: 042
     Dates: start: 20200615, end: 20200626
  3. TN UNSPECIFIED [Concomitant]
     Indication: Acute lymphocytic leukaemia
     Dosage: 31 MG, D1, D8 AND D15
     Route: 042
     Dates: start: 20200615, end: 20200629
  4. TN UNSPECIFIED [Concomitant]
     Indication: Acute lymphocytic leukaemia
     Dosage: 12 MG, ON D4
     Route: 037
     Dates: start: 20200618, end: 20200618
  5. TN UNSPECIFIED [Concomitant]
     Indication: Acute lymphocytic leukaemia
     Dosage: 12 MG, FROM D1 TO D15
     Route: 048
     Dates: start: 20200615, end: 20200629
  6. TN UNSPECIFIED [Concomitant]
     Indication: Product used for unknown indication
     Dosage: 37.8 MG
     Route: 042
     Dates: start: 20200127, end: 20200130
  7. PERFALGAN [Concomitant]
     Active Substance: ACETAMINOPHEN
     Indication: Product used for unknown indication
     Dosage: 400 MG
     Route: 042
     Dates: start: 20200124, end: 20200202
  8. ATARAX [Concomitant]
     Active Substance: HYDROXYZINE HYDROCHLORIDE
     Indication: Product used for unknown indication
     Dosage: 40 MG
     Route: 042
     Dates: start: 20200127, end: 20200127
  9. Naurubain [Concomitant]
     Indication: Product used for unknown indication
     Dosage: 8 MG
     Route: 042
     Dates: start: 20200127, end: 20200213
  10. ONDANSETRON [Concomitant]
     Active Substance: ONDANSETRON
     Indication: Product used for unknown indication
     Dosage: 8 MG
     Route: 042
     Dates: start: 20200202, end: 20200213
  11. ESOMEPRAZOLE [Concomitant]
     Active Substance: ESOMEPRAZOLE
     Indication: Product used for unknown indication
     Dosage: 20 MG
     Route: 042
     Dates: start: 20200202, end: 20200316
  12. ANTITHROMBIN III HUMAN [Concomitant]
     Active Substance: ANTITHROMBIN III HUMAN
     Indication: Product used for unknown indication
     Dosage: 1200 IU
     Route: 065
     Dates: start: 20200210, end: 20200213
  13. FUNGIZONE [Concomitant]
     Active Substance: AMPHOTERICIN B
     Indication: Product used for unknown indication
     Dosage: 5 MG
     Route: 048
     Dates: start: 20200316, end: 20200316
  14. BACTRIM [Concomitant]
     Active Substance: SULFAMETHOXAZOLE\TRIMETHOPRIM
     Indication: Product used for unknown indication
     Dosage: 800 MG
     Route: 048
     Dates: start: 20200202, end: 20200316
  15. BISACODYL [Concomitant]
     Active Substance: BISACODYL
     Indication: Product used for unknown indication
     Dosage: UNK
     Route: 065
     Dates: start: 20200216, end: 20200316
  16. RIVOTRIL [Concomitant]
     Active Substance: CLONAZEPAM
     Indication: Product used for unknown indication
     Dosage: UNK
     Route: 065
     Dates: start: 20200213, end: 20200709

REACTIONS (2)
  - Cerebral venous thrombosis [Recovered/Resolved]
  - Posterior reversible encephalopathy syndrome [Not Recovered/Not Resolved]

NARRATIVE: CASE EVENT DATE: 20200704
